FAERS Safety Report 22354968 (Version 2)
Quarter: 2023Q2

REPORT INFORMATION
  Report Type: Report from Study
  Country: US (occurrence: None)
  Receive Date: 20230523
  Receipt Date: 20230607
  Transmission Date: 20230722
  Serious: Yes (Hospitalization, Other)
  Sender: FDA-Public Use
  Company Number: US-ROCHE-3353469

PATIENT
  Age: 57 Year
  Sex: Male
  Weight: 94 kg

DRUGS (5)
  1. ATEZOLIZUMAB [Suspect]
     Active Substance: ATEZOLIZUMAB
     Indication: Bladder transitional cell carcinoma
     Dosage: LAST ADMINISTERED ON 29/JUN/2020, ON DAY 1
     Route: 042
     Dates: start: 20200113, end: 20200629
  2. GEMCITABINE HYDROCHLORIDE [Suspect]
     Active Substance: GEMCITABINE HYDROCHLORIDE
     Indication: Bladder transitional cell carcinoma
     Dosage: START DATE OF COURSE ASSOCIATED WITH EXPEDITED REPORT ON 12/AUG/2020
     Route: 042
     Dates: start: 20200113
  3. CISPLATIN [Suspect]
     Active Substance: CISPLATIN
     Indication: Bladder transitional cell carcinoma
     Dosage: 35 MG/M2 IV WEEKLY FOR SIX WEEKS, START DATE OF COURSE ASSOCIATED WITH EXPEDITED REPORT ON 12/AUG/20
     Route: 042
     Dates: start: 20200113
  4. FLUOROURACIL [Suspect]
     Active Substance: FLUOROURACIL
     Indication: Bladder transitional cell carcinoma
     Dosage: START DATE OF COURSE ASSOCIATED WITH EXPEDITED REPORT ON 12/AUG/2020, GIVEN ON SAME DAYS AS DOSES 1-
     Route: 042
     Dates: start: 20200113
  5. MITOMYCIN C [Suspect]
     Active Substance: MITOMYCIN
     Indication: Bladder transitional cell carcinoma
     Dosage: START DATE OF COURSE ASSOCIATED WITH EXPEDITED REPORT ON 12/AUG/2020, GIVEN ON SAME DAY AS DOSE 1 OF
     Route: 042
     Dates: start: 20200113

REACTIONS (6)
  - Haemoglobin decreased [Recovering/Resolving]
  - Cystitis radiation [Recovering/Resolving]
  - Gastrointestinal haemorrhage [Recovering/Resolving]
  - Gastrointestinal ulcer [Recovering/Resolving]
  - Calculus bladder [Recovered/Resolved]
  - Blood creatinine increased [Recovering/Resolving]

NARRATIVE: CASE EVENT DATE: 20201026
